FAERS Safety Report 20864531 (Version 1)
Quarter: 2022Q2

REPORT INFORMATION
  Report Type: Spontaneous
  Country: US (occurrence: None)
  Receive Date: 20220524
  Receipt Date: 20220524
  Transmission Date: 20220721
  Serious: No
  Sender: FDA-Public Use
  Company Number: 2022A174696

PATIENT
  Age: 955 Month
  Sex: Female
  Weight: 93 kg

DRUGS (1)
  1. FARXIGA [Suspect]
     Active Substance: DAPAGLIFLOZIN PROPANEDIOL
     Indication: Type 2 diabetes mellitus
     Route: 048

REACTIONS (2)
  - Chronic kidney disease [Unknown]
  - Joint injury [Unknown]

NARRATIVE: CASE EVENT DATE: 20220401
